FAERS Safety Report 7564299-5 (Version None)
Quarter: 2011Q2

REPORT INFORMATION
  Report Type: 
  Country: None (occurrence: None)
  Receive Date: 20110622
  Receipt Date: 20110609
  Transmission Date: 20111010
  Serious: Yes (Hospitalization, Other)
  Sender: FDA-Public Use
  Company Number: PHHY2010BR60041

PATIENT
  Sex: Female

DRUGS (3)
  1. CONTRACEPTIVES NOS [Concomitant]
  2. BUDESONIDE [Suspect]
     Dosage: 200 UG, Q8H
  3. FORMOTEROL FUMARATE [Suspect]
     Indication: ASTHMA
     Dosage: 1 DF, Q8H

REACTIONS (4)
  - SHOCK [None]
  - ABORTION SPONTANEOUS [None]
  - DRUG EXPOSURE DURING PREGNANCY [None]
  - HAEMORRHAGE [None]
